FAERS Safety Report 6309463-8 (Version None)
Quarter: 2009Q3

REPORT INFORMATION
  Report Type: 
  Country: None (occurrence: None)
  Receive Date: 20090814
  Receipt Date: 20090813
  Transmission Date: 20100115
  Serious: Yes (Hospitalization, Other)
  Sender: FDA-Public Use
  Company Number: US-JNJFOC-20070302557

PATIENT
  Age: 75 Year
  Sex: Male
  Weight: 81.74 kg

DRUGS (22)
  1. NESERITIDE [Suspect]
     Indication: CARDIAC FAILURE CONGESTIVE
     Route: 042
  2. COLCHICINE [Suspect]
     Indication: GOUT
     Route: 048
     Dates: start: 20041014, end: 20041228
  3. ALLOPURINOL [Suspect]
     Indication: GOUT
     Route: 048
     Dates: start: 20041014, end: 20051228
  4. AMLODIPINE BESYLATE [Concomitant]
  5. BISOPROLOL [Concomitant]
  6. CALCIUM ACETATE [Concomitant]
  7. EPOETIN ALFA [Concomitant]
  8. FLUOROURACIL [Concomitant]
  9. HYDRALAZINE HCL [Concomitant]
  10. HYDROCODONE BITARTRATE [Concomitant]
  11. LEVOTHYROXINE SODIUM [Concomitant]
  12. METOLAZONE [Concomitant]
  13. MUPIROCIN [Concomitant]
  14. PANTOPRAZOLE SODIUM [Concomitant]
  15. PARACETAMOL [Concomitant]
  16. PAROXETINE HCL [Concomitant]
  17. SULFA-RETARD [Concomitant]
  18. VALSARTAN [Concomitant]
  19. WARFARIN SODIUM [Concomitant]
  20. LASIX [Concomitant]
  21. LORTAB [Concomitant]
  22. SYNTHROID [Concomitant]

REACTIONS (29)
  - ACTIVATED PARTIAL THROMBOPLASTIN TIME PROLONGED [None]
  - ARRHYTHMIA [None]
  - ARTHRALGIA [None]
  - BLOOD PRESSURE SYSTOLIC INCREASED [None]
  - BLOOD URIC ACID INCREASED [None]
  - BRAIN NATRIURETIC PEPTIDE INCREASED [None]
  - CARDIAC FAILURE CONGESTIVE [None]
  - CARDIAC MURMUR [None]
  - CELLULITIS [None]
  - CONDITION AGGRAVATED [None]
  - CYANOSIS [None]
  - FAT EMBOLISM [None]
  - JOINT SWELLING [None]
  - MEAN ARTERIAL PRESSURE DECREASED [None]
  - NEPHROPATHY TOXIC [None]
  - PERIPHERAL EMBOLISM [None]
  - PERIPHERAL VASCULAR DISORDER [None]
  - POOR PERIPHERAL CIRCULATION [None]
  - PULMONARY OEDEMA [None]
  - PULSE ABSENT [None]
  - RENAL EMBOLISM [None]
  - RENAL FAILURE ACUTE [None]
  - RENAL TUBULAR NECROSIS [None]
  - RESPIRATORY RATE INCREASED [None]
  - SKIN ULCER [None]
  - VENOUS INSUFFICIENCY [None]
  - WEIGHT DECREASED [None]
  - WHITE BLOOD CELL COUNT INCREASED [None]
  - WOUND SECRETION [None]
